FAERS Safety Report 23284629 (Version 3)
Quarter: 2024Q1

REPORT INFORMATION
  Report Type: Spontaneous
  Country: NO (occurrence: NO)
  Receive Date: 20231211
  Receipt Date: 20240223
  Transmission Date: 20240410
  Serious: Yes (Hospitalization)
  Sender: FDA-Public Use
  Company Number: NO-BAYER-2023A176726

PATIENT
  Sex: Female

DRUGS (1)
  1. CIPROFLOXACIN [Suspect]
     Active Substance: CIPROFLOXACIN
     Dosage: 500 MG, BID
     Route: 048
     Dates: start: 20160816, end: 20160825

REACTIONS (14)
  - Illness [None]
  - Abdominal pain upper [Not Recovered/Not Resolved]
  - Dyspnoea [Not Recovered/Not Resolved]
  - Heart rate decreased [Not Recovered/Not Resolved]
  - Headache [Not Recovered/Not Resolved]
  - Dysbiosis [None]
  - Fatigue [None]
  - Gastrointestinal injury [None]
  - Diarrhoea [None]
  - Myalgia [None]
  - Limb discomfort [None]
  - Snoring [None]
  - Tooth infection [None]
  - Sleep disorder [None]
